FAERS Safety Report 10243551 (Version 1)
Quarter: 2014Q2

REPORT INFORMATION
  Report Type: Spontaneous
  Country: US (occurrence: US)
  Receive Date: 20140618
  Receipt Date: 20140618
  Transmission Date: 20141212
  Serious: Yes (Other)
  Sender: FDA-Public Use
  Company Number: US-PFIZER INC-2014166305

PATIENT
  Sex: Male

DRUGS (2)
  1. LYRICA [Suspect]
     Dosage: UNK
     Dates: end: 201108
  2. LYRICA [Suspect]
     Dosage: UNK

REACTIONS (3)
  - Weight increased [Unknown]
  - Eye disorder [Unknown]
  - Visual impairment [Unknown]
